FAERS Safety Report 25362497 (Version 2)
Quarter: 2025Q4

REPORT INFORMATION
  Report Type: Spontaneous
  Country: US (occurrence: US)
  Receive Date: 20250527
  Receipt Date: 20251023
  Transmission Date: 20260117
  Serious: No
  Sender: BAYER HEALTHCARE LLC
  Company Number: US-BAYER-2025A069562

PATIENT
  Age: 71 Year
  Sex: Male

DRUGS (4)
  1. ASTEPRO [Suspect]
     Active Substance: AZELASTINE HYDROCHLORIDE
     Indication: Hypersensitivity
     Dosage: 2 SPRAYS IN EACH NOSTRIL ONCE A DAY
     Dates: start: 20250502
  2. ASTEPRO [Suspect]
     Active Substance: AZELASTINE HYDROCHLORIDE
     Indication: Nasopharyngitis
     Dosage: 2 SPRAYS IN EACH NOSTRIL ONCE A DAY
     Dates: start: 20250521
  3. ASTEPRO ALLERGY [Suspect]
     Active Substance: AZELASTINE HYDROCHLORIDE
     Indication: Hypersensitivity
     Dosage: 2 SPRAYS IN EACH NOSTRIL ONCE A DAY
     Dates: start: 20250502
  4. ASTEPRO ALLERGY [Suspect]
     Active Substance: AZELASTINE HYDROCHLORIDE
     Indication: Nasopharyngitis
     Dosage: 2 SPRAYS IN EACH NOSTRIL ONCE A DAY
     Dates: start: 20250521

REACTIONS (7)
  - Sneezing [Unknown]
  - Pruritus [Unknown]
  - Rash [Unknown]
  - Sneezing [Unknown]
  - Pruritus [Unknown]
  - Rash [Unknown]
  - Product expiration date issue [None]

NARRATIVE: CASE EVENT DATE: 20250502
